FAERS Safety Report 7540509-5 (Version None)
Quarter: 2011Q2

REPORT INFORMATION
  Report Type: 
  Country: None (occurrence: None)
  Receive Date: 20110610
  Receipt Date: 20110603
  Transmission Date: 20111010
  Serious: Yes (Hospitalization)
  Sender: FDA-Public Use
  Company Number: A0930171A

PATIENT
  Age: 70 Year
  Sex: Female

DRUGS (6)
  1. COUMADIN [Concomitant]
  2. PREVACID [Concomitant]
  3. LOVAZA [Concomitant]
  4. AMLODIPINE [Concomitant]
  5. METOPROLOL [Concomitant]
  6. ARIXTRA [Suspect]
     Dosage: 8.4ML PER DAY
     Route: 058
     Dates: start: 20101217

REACTIONS (5)
  - DIZZINESS [None]
  - OEDEMA PERIPHERAL [None]
  - HEART RATE DECREASED [None]
  - THROMBOSIS [None]
  - BLOOD PRESSURE INCREASED [None]
